FAERS Safety Report 25828626 (Version 1)
Quarter: 2025Q3

REPORT INFORMATION
  Report Type: Spontaneous
  Country: US (occurrence: US)
  Receive Date: 20250922
  Receipt Date: 20250922
  Transmission Date: 20251020
  Serious: Yes (Hospitalization)
  Sender: JOHNSON AND JOHNSON
  Company Number: US-JNJFOC-20250915217

PATIENT

DRUGS (1)
  1. TREMFYA [Suspect]
     Active Substance: GUSELKUMAB
     Indication: Crohn^s disease
     Route: 058
     Dates: start: 202507, end: 202509

REACTIONS (4)
  - Liver function test abnormal [Unknown]
  - Blood bilirubin increased [Unknown]
  - Abdominal pain upper [Unknown]
  - Malaise [Unknown]

NARRATIVE: CASE EVENT DATE: 20250911
